FAERS Safety Report 7081404-8 (Version None)
Quarter: 2010Q4

REPORT INFORMATION
  Report Type: 
  Country: None (occurrence: None)
  Receive Date: 20101102
  Receipt Date: 20101102
  Transmission Date: 20110411
  Serious: Yes (Death)
  Sender: FDA-Public Use
  Company Number: None

PATIENT
  Sex: Male

DRUGS (6)
  1. REVLIMID [Suspect]
     Indication: MULTIPLE MYELOMA
     Dosage: REVLIMID 25MG QD 21D/28D ORALLY
     Route: 048
     Dates: start: 20070201, end: 20090801
  2. DEXAMETHASONE [Concomitant]
  3. GABAPENTIN [Concomitant]
  4. ACYCLOVIR [Concomitant]
  5. METOPROLOL TARTRATE [Concomitant]
  6. WARFARIN [Concomitant]

REACTIONS (5)
  - INTERNATIONAL NORMALISED RATIO INCREASED [None]
  - JAUNDICE [None]
  - PANCREATIC CARCINOMA METASTATIC [None]
  - SMALL INTESTINE CARCINOMA [None]
  - SYNCOPE [None]
